FAERS Safety Report 7704710-X (Version None)
Quarter: 2011Q3

REPORT INFORMATION
  Report Type: 
  Country: None (occurrence: None)
  Receive Date: 20110823
  Receipt Date: 20110330
  Transmission Date: 20111222
  Serious: No
  Sender: FDA-Public Use
  Company Number: US-BRISTOL-MYERS SQUIBB COMPANY-15646979

PATIENT
  Sex: Female

DRUGS (5)
  1. ESTRACE [Suspect]
  2. MENOPUR [Concomitant]
     Dosage: 1DF= 75 UNITS NOS.
  3. LUPRON [Suspect]
  4. PROMETRIUM [Suspect]
  5. UROFOLLITROPIN [Concomitant]
     Dosage: 1DF= 187.5 UNITS NOS.

REACTIONS (10)
  - MEMORY IMPAIRMENT [None]
  - FEELING ABNORMAL [None]
  - BREAST PAIN [None]
  - UTERINE SPASM [None]
  - DYSPNOEA [None]
  - ANXIETY [None]
  - DIZZINESS [None]
  - BACK PAIN [None]
  - POOR QUALITY SLEEP [None]
  - HEADACHE [None]
